FAERS Safety Report 14735505 (Version 1)
Quarter: 2018Q2

REPORT INFORMATION
  Report Type: Spontaneous
  Country: US (occurrence: US)
  Receive Date: 20180403
  Receipt Date: 20180403
  Transmission Date: 20180711
  Serious: No
  Sender: FDA-Public Use
  Company Number: None

PATIENT
  Age: 69 Year
  Sex: Female
  Weight: 91.17 kg

DRUGS (23)
  1. ACYCLOVIR. [Concomitant]
     Active Substance: ACYCLOVIR
  2. VITAMIN B12 [Concomitant]
     Active Substance: CYANOCOBALAMIN
  3. LAMICTAL [Concomitant]
     Active Substance: LAMOTRIGINE
  4. PREDNISONE. [Concomitant]
     Active Substance: PREDNISONE
  5. ZYRTEC [Concomitant]
     Active Substance: CETIRIZINE HYDROCHLORIDE
  6. AFRIN [Concomitant]
     Active Substance: OXYMETAZOLINE
  7. MAGNESIUM [Concomitant]
     Active Substance: MAGNESIUM
  8. PROPOFOL. [Suspect]
     Active Substance: PROPOFOL
     Indication: COLONOSCOPY
     Route: 042
     Dates: start: 20170906
  9. ESTRADIOL. [Concomitant]
     Active Substance: ESTRADIOL
  10. PRILOSEC [Concomitant]
     Active Substance: OMEPRAZOLE MAGNESIUM
  11. XYLOCAINE [Suspect]
     Active Substance: LIDOCAINE HYDROCHLORIDE
     Route: 042
     Dates: start: 20170906
  12. VITAMIN D3 [Concomitant]
     Active Substance: CHOLECALCIFEROL
  13. PROAIR INHALER [Concomitant]
     Active Substance: ALBUTEROL SULFATE
  14. ALPRAZOLAM. [Concomitant]
     Active Substance: ALPRAZOLAM
  15. FLUTICASONE. [Concomitant]
     Active Substance: FLUTICASONE
  16. VALACYCLOVIR [Concomitant]
     Active Substance: VALACYCLOVIR HYDROCHLORIDE
  17. CALCIUM [Concomitant]
     Active Substance: CALCIUM
  18. LISINOPRIL. [Concomitant]
     Active Substance: LISINOPRIL
  19. CELEBREX [Concomitant]
     Active Substance: CELECOXIB
  20. TRAZODONE [Concomitant]
     Active Substance: TRAZODONE HYDROCHLORIDE
  21. CYMBALTA [Concomitant]
     Active Substance: DULOXETINE HYDROCHLORIDE
  22. EXCEDRINE [Concomitant]
  23. HIZENTRA [Concomitant]
     Active Substance: HUMAN IMMUNOGLOBULIN G

REACTIONS (4)
  - Peripheral swelling [None]
  - Swelling face [None]
  - Headache [None]
  - Hypersensitivity [None]

NARRATIVE: CASE EVENT DATE: 20170906
